FAERS Safety Report 6285247-4 (Version None)
Quarter: 2009Q3

REPORT INFORMATION
  Report Type: 
  Country: None (occurrence: None)
  Receive Date: 20090727
  Receipt Date: 20090720
  Transmission Date: 20100115
  Serious: Yes (Disabling, Other)
  Sender: FDA-Public Use
  Company Number: GB-TEVA-202900ISR

PATIENT
  Sex: Male

DRUGS (1)
  1. SOTALOL [Suspect]
     Indication: ATRIAL FIBRILLATION
     Route: 048
     Dates: start: 20081103

REACTIONS (1)
  - HAND DEFORMITY [None]
